FAERS Safety Report 8797163 (Version 5)
Quarter: 2016Q2

REPORT INFORMATION
  Report Type: Report from Study
  Country: US (occurrence: US)
  Receive Date: 20120919
  Receipt Date: 20160601
  Transmission Date: 20160815
  Serious: Yes (Other)
  Sender: FDA-Public Use
  Company Number: US-ROCHE-1064703

PATIENT
  Age: 60 Year
  Sex: Female
  Weight: 67.19 kg

DRUGS (19)
  1. COPEGUS [Suspect]
     Active Substance: RIBAVIRIN
     Indication: CHRONIC HEPATITIS C
     Dosage: DAILY DIVIDED DOSES?400 MG IN MORNING AND 600 MG IN EVENING
     Route: 048
     Dates: start: 20111113
  2. COPEGUS [Suspect]
     Active Substance: RIBAVIRIN
     Dosage: DAILY DIVIDED DOSES
     Route: 048
     Dates: start: 20120504
  3. COPEGUS [Suspect]
     Active Substance: RIBAVIRIN
     Route: 048
     Dates: end: 20121009
  4. XANAX [Concomitant]
     Active Substance: ALPRAZOLAM
     Indication: SLEEP DISORDER
     Route: 048
  5. ESTRADIOL. [Concomitant]
     Active Substance: ESTRADIOL
     Route: 065
  6. PEGASYS [Suspect]
     Active Substance: PEGINTERFERON ALFA-2A
     Route: 058
     Dates: start: 20120416
  7. PAROXETINE. [Concomitant]
     Active Substance: PAROXETINE
  8. VAGIFEM [Concomitant]
     Active Substance: ESTRADIOL
  9. EVISTA [Concomitant]
     Active Substance: RALOXIFENE HYDROCHLORIDE
  10. PROZAC [Concomitant]
     Active Substance: FLUOXETINE HYDROCHLORIDE
     Indication: DEPRESSION
     Route: 048
  11. AZITHROMYCIN ANHYDROUS. [Concomitant]
     Active Substance: AZITHROMYCIN ANHYDROUS
  12. ZOLPIDEM [Concomitant]
     Active Substance: ZOLPIDEM\ZOLPIDEM TARTRATE
  13. FISH OIL [Concomitant]
     Active Substance: FISH OIL
  14. S-ADENOSYLMETHIONINE SULFATE P-TOLUENESULFONATE [Concomitant]
     Active Substance: ADEMETIONINE SULFATE TOSILATE
  15. PATANOL [Concomitant]
     Active Substance: OLOPATADINE HYDROCHLORIDE
  16. PRILOSEC [Concomitant]
     Active Substance: OMEPRAZOLE MAGNESIUM
  17. PEGASYS [Suspect]
     Active Substance: PEGINTERFERON ALFA-2A
     Indication: CHRONIC HEPATITIS C
     Route: 058
     Dates: start: 20111113
  18. ATARAX [Concomitant]
     Active Substance: HYDROXYZINE\HYDROXYZINE HYDROCHLORIDE
     Indication: PRURITUS
     Dosage: DOSE: EVERY 8 HRS AS REQUIRED
     Route: 048
     Dates: start: 20120302
  19. MILK THISTLE [Concomitant]
     Active Substance: MILK THISTLE

REACTIONS (23)
  - White blood cell count decreased [Unknown]
  - Decreased appetite [Unknown]
  - Red blood cell count decreased [Recovering/Resolving]
  - Confusional state [Unknown]
  - Oropharyngeal pain [Unknown]
  - Visual impairment [Unknown]
  - Glossodynia [Unknown]
  - Retinal tear [Unknown]
  - Fatigue [Unknown]
  - Mania [Unknown]
  - Dizziness [Unknown]
  - Haemoglobin decreased [Unknown]
  - Dry skin [Unknown]
  - Gastrooesophageal reflux disease [Unknown]
  - Bruxism [Unknown]
  - Vitreous floaters [Unknown]
  - Hepatitis C [Unknown]
  - Tension [Unknown]
  - Nausea [Unknown]
  - Alopecia [Unknown]
  - Depression [Unknown]
  - Dysgeusia [Unknown]
  - Gallbladder polyp [Unknown]

NARRATIVE: CASE EVENT DATE: 20120504
